FAERS Safety Report 15649868 (Version 1)
Quarter: 2018Q4

REPORT INFORMATION
  Report Type: Report from Study
  Country: DE (occurrence: DE)
  Receive Date: 20181123
  Receipt Date: 20181123
  Transmission Date: 20190205
  Serious: Yes (Hospitalization, Other)
  Sender: FDA-Public Use
  Company Number: PHHO2018DE012147

PATIENT
  Age: 62 Year
  Sex: Female
  Weight: 59 kg

DRUGS (2)
  1. ACZ885 [Suspect]
     Active Substance: CANAKINUMAB
     Indication: CARDIOVASCULAR EVENT PROPHYLAXIS
     Dosage: 150 MG/ML, QUATERLY
     Route: 058
  2. ACZ885 [Suspect]
     Active Substance: CANAKINUMAB
     Indication: CARDIOVASCULAR EVENT PROPHYLAXIS
     Dosage: 300 MG, QUARTERLY
     Route: 058

REACTIONS (16)
  - Cholelithiasis [Recovering/Resolving]
  - Pancreatitis [Recovering/Resolving]
  - Clostridium difficile infection [Recovering/Resolving]
  - Electrocardiogram QT prolonged [Recovering/Resolving]
  - Oesophageal candidiasis [Recovering/Resolving]
  - Pleurisy [Recovering/Resolving]
  - Duodenitis [Recovering/Resolving]
  - Enterocolitis [Recovering/Resolving]
  - Hyponatraemia [Recovering/Resolving]
  - Cholecystitis [Recovering/Resolving]
  - Pneumonia [Recovering/Resolving]
  - Hepatic cyst [Not Recovered/Not Resolved]
  - Hypokalaemia [Recovering/Resolving]
  - Atrial fibrillation [Recovering/Resolving]
  - Gastric varices [Not Recovered/Not Resolved]
  - Volume blood decreased [Recovering/Resolving]

NARRATIVE: CASE EVENT DATE: 20180706
